FAERS Safety Report 7537009-5 (Version None)
Quarter: 2011Q2

REPORT INFORMATION
  Report Type: 
  Country: None (occurrence: None)
  Receive Date: 20110609
  Receipt Date: 20110602
  Transmission Date: 20111010
  Serious: Yes (Other)
  Sender: FDA-Public Use
  Company Number: PHHY2011BE48648

PATIENT
  Age: 48 Year
  Sex: Female
  Weight: 67 kg

DRUGS (5)
  1. RITONAVIR [Interacting]
     Dosage: 100 MG/DAY
  2. ATAZANAVIR [Suspect]
     Dosage: 300 MG/DAY
  3. LAMIVUDINE [Suspect]
     Dosage: 15 MG/DAY
  4. MEFLOQUINE HYDROCHLORIDE [Interacting]
     Dosage: 1 DF, QW (STARTING 2 WEEKS BEFORE DEPARTURE)
  5. TENOFOVIR DISOPROXIL FUMARATE [Suspect]
     Dosage: 300 MG/DAY

REACTIONS (7)
  - NEUROTOXICITY [None]
  - PALPITATIONS [None]
  - DIZZINESS [None]
  - DYSPNOEA [None]
  - ANXIETY [None]
  - ASTHENIA [None]
  - DRUG INTERACTION [None]
